FAERS Safety Report 6358610-0 (Version None)
Quarter: 2009Q3

REPORT INFORMATION
  Report Type: 
  Country: None (occurrence: None)
  Receive Date: 20090914
  Receipt Date: 20090901
  Transmission Date: 20100115
  Serious: Yes (Death, Life-Threatening)
  Sender: FDA-Public Use
  Company Number: 2009AL002055

PATIENT
  Age: 64 Year
  Sex: Male

DRUGS (9)
  1. DIGOXIN [Suspect]
     Dosage: 0.25MG, DAILY, PO
     Route: 048
  2. AMIODARONE HCL [Concomitant]
  3. ASPIRIN [Concomitant]
  4. AVALIDE [Concomitant]
  5. EFFEXOR [Concomitant]
  6. LEVOTHYROXINE SODIUM [Concomitant]
  7. COUMADIN [Concomitant]
  8. ZOCOR [Concomitant]
  9. SIMVASTATIN [Concomitant]

REACTIONS (21)
  - ALCOHOL USE [None]
  - ANXIETY [None]
  - ASTHENIA [None]
  - BLOOD CREATINE PHOSPHOKINASE INCREASED [None]
  - BRAIN DEATH [None]
  - BRAIN HERNIATION [None]
  - CEREBRAL HAEMORRHAGE [None]
  - CORONARY ARTERY DISEASE [None]
  - DEPRESSION [None]
  - ECONOMIC PROBLEM [None]
  - EMOTIONAL DISTRESS [None]
  - FAMILY STRESS [None]
  - HYPERTENSION [None]
  - HYPOXIA [None]
  - ILL-DEFINED DISORDER [None]
  - INJURY [None]
  - PAIN [None]
  - RENAL FAILURE ACUTE [None]
  - SOCIAL PROBLEM [None]
  - SPEECH DISORDER [None]
  - SURGERY [None]
